FAERS Safety Report 6542873-2 (Version None)
Quarter: 2010Q1

REPORT INFORMATION
  Report Type: 
  Country: None (occurrence: None)
  Receive Date: 20100120
  Receipt Date: 20100111
  Transmission Date: 20100710
  Serious: Yes (Death, Other)
  Sender: FDA-Public Use
  Company Number: US-BIOGENIDEC-2009BI032553

PATIENT
  Sex: Male

DRUGS (1)
  1. AVONEX [Suspect]
     Indication: MULTIPLE SCLEROSIS
     Route: 030
     Dates: start: 20071102

REACTIONS (4)
  - CARDIAC ARREST [None]
  - LARGE INTESTINAL OBSTRUCTION [None]
  - SEPSIS [None]
  - VOLVULUS [None]
